FAERS Safety Report 24195928 (Version 1)
Quarter: 2024Q3

REPORT INFORMATION
  Report Type: Spontaneous
  Country: US (occurrence: None)
  Receive Date: 20240809
  Receipt Date: 20240809
  Transmission Date: 20241016
  Serious: Yes (Other)
  Sender: Public
  Company Number: None

PATIENT
  Age: 73 Year
  Sex: Female
  Weight: 58.97 kg

DRUGS (2)
  1. FLUTICASONE PROPIONATE [Suspect]
     Active Substance: FLUTICASONE PROPIONATE
     Indication: Asthma
     Dosage: 2 PUFFS  TWICE DAILY INHALED BY MOUTH ?
     Route: 055
     Dates: start: 20200101, end: 20210108
  2. ALBUTEROL SULFATE [Suspect]
     Active Substance: ALBUTEROL SULFATE
     Indication: Asthma
     Dosage: 2 PUFFS ?
     Route: 055
     Dates: end: 20210108

REACTIONS (5)
  - Ear pain [None]
  - Crying [None]
  - Hypoacusis [None]
  - Deafness [None]
  - Ear disorder [None]

NARRATIVE: CASE EVENT DATE: 20210104
